FAERS Safety Report 6239266 (Version 3)
Quarter: 2014Q3

REPORT INFORMATION
  Report Type: Spontaneous
  Country: SE (occurrence: SE)
  Receive Date: 20070216
  Receipt Date: 20140715
  Transmission Date: 20150326
  Serious: Yes (Death, Life-Threatening, Hospitalization)
  Sender: FDA-Public Use
  Company Number: SE-JNJFOC-20070202227

PATIENT
  Age: 76 Year
  Sex: Female

DRUGS (8)
  1. PANODIL [Concomitant]
     Active Substance: ACETAMINOPHEN
     Route: 065
  2. CALCICHEW-D3 [Concomitant]
     Active Substance: CALCIUM\CHOLECALCIFEROL
     Route: 065
  3. OMEPRAZOL [Concomitant]
     Active Substance: OMEPRAZOLE
     Route: 065
  4. FOLACIN [Concomitant]
     Active Substance: FOLIC ACID
     Route: 065
  5. PREDNISOLON [Concomitant]
     Active Substance: PREDNISOLONE
     Route: 065
  6. REMICADE [Suspect]
     Active Substance: INFLIXIMAB
     Indication: TEMPORAL ARTERITIS
     Route: 042
     Dates: start: 20051207, end: 20060203
  7. METHOTREXATE [Concomitant]
     Active Substance: METHOTREXATE
     Route: 065
  8. OPTINATE COMBI D [Concomitant]
     Dosage: FILM COATED TABLETS AND EFFERVESCENT GRANULES
     Route: 065

REACTIONS (6)
  - Sepsis [Fatal]
  - Off label use [Unknown]
  - Lung infiltration [Unknown]
  - Respiratory failure [Fatal]
  - Renal failure [Fatal]
  - Interstitial lung disease [Fatal]

NARRATIVE: CASE EVENT DATE: 20060203
